FAERS Safety Report 17067759 (Version 3)
Quarter: 2020Q1

REPORT INFORMATION
  Report Type: Spontaneous
  Country: US (occurrence: US)
  Receive Date: 20191122
  Receipt Date: 20200313
  Transmission Date: 20200409
  Serious: Yes (Other)
  Sender: FDA-Public Use
  Company Number: US-009507513-1911USA008239

PATIENT
  Age: 24 Year
  Sex: Female
  Weight: 141.5 kg

DRUGS (1)
  1. NUVARING [Suspect]
     Active Substance: ETHINYL ESTRADIOL\ETONOGESTREL
     Dosage: UNK
     Route: 067
     Dates: end: 20191111

REACTIONS (6)
  - Hypertension [Unknown]
  - Unintended pregnancy [Recovered/Resolved]
  - Prescription drug used without a prescription [Unknown]
  - Pregnancy with contraceptive device [Recovered/Resolved]
  - Pelvic pain [Unknown]
  - Back pain [Unknown]

NARRATIVE: CASE EVENT DATE: 20190415
